FAERS Safety Report 23918666 (Version 1)
Quarter: 2024Q2

REPORT INFORMATION
  Report Type: Spontaneous
  Country: DE (occurrence: DE)
  Receive Date: 20240530
  Receipt Date: 20240530
  Transmission Date: 20240716
  Serious: Yes (Hospitalization, Other)
  Sender: FDA-Public Use
  Company Number: None

PATIENT
  Age: 35 Year
  Sex: Female
  Weight: 49 kg

DRUGS (3)
  1. GANIRELIX ACETATE [Suspect]
     Active Substance: GANIRELIX ACETATE
     Indication: Assisted reproductive technology
     Dosage: 0,25
     Dates: start: 20240417, end: 20240422
  2. CHORIOGONADOTROPIN ALFA [Suspect]
     Active Substance: CHORIOGONADOTROPIN ALFA
     Indication: Assisted reproductive technology
     Dosage: 250
     Dates: start: 20240422, end: 20240422
  3. FOLLITROPIN\LUTROPIN ALFA [Suspect]
     Active Substance: FOLLITROPIN\LUTROPIN ALFA
     Indication: Assisted reproductive technology
     Dosage: 112,5
     Dates: start: 20240412, end: 20240421

REACTIONS (7)
  - Ileus paralytic [Recovered/Resolved with Sequelae]
  - Ovarian haemorrhage [Recovered/Resolved with Sequelae]
  - Acute abdomen [Recovered/Resolved with Sequelae]
  - Polycystic ovaries [Recovered/Resolved with Sequelae]
  - Haemoperitoneum [Recovered/Resolved with Sequelae]
  - Ovarian hyperstimulation syndrome [Recovered/Resolved with Sequelae]
  - Ovarian rupture [Recovered/Resolved with Sequelae]

NARRATIVE: CASE EVENT DATE: 20240425
